FAERS Safety Report 14675927 (Version 1)
Quarter: 2018Q1

REPORT INFORMATION
  Report Type: Spontaneous
  Country: US (occurrence: US)
  Receive Date: 20180323
  Receipt Date: 20180323
  Transmission Date: 20180509
  Serious: Yes (Disabling)
  Sender: FDA-Public Use
  Company Number: None

PATIENT
  Age: 66 Year
  Sex: Male
  Weight: 101.25 kg

DRUGS (13)
  1. PRALUENT [Suspect]
     Active Substance: ALIROCUMAB
     Indication: CORONARY ARTERY DISEASE
     Dosage: ?          OTHER FREQUENCY:BI-WEEKLY;?
     Route: 030
     Dates: start: 20170406, end: 20180222
  2. PLACIDYL [Concomitant]
     Active Substance: ETHCHLORVYNOL
  3. PRALUENT [Suspect]
     Active Substance: ALIROCUMAB
     Indication: BLOOD CHOLESTEROL INCREASED
     Dosage: ?          OTHER FREQUENCY:BI-WEEKLY;?
     Route: 030
     Dates: start: 20170406, end: 20180222
  4. AMPLODIPINE [Concomitant]
  5. ASPIRIN. [Concomitant]
     Active Substance: ASPIRIN
  6. ENALIPRIL [Concomitant]
  7. TOP ORAL XL [Concomitant]
  8. CELEBREX [Concomitant]
     Active Substance: CELECOXIB
  9. VITAMIN D3 [Concomitant]
     Active Substance: CHOLECALCIFEROL
  10. ALLOPURINOL. [Suspect]
     Active Substance: ALLOPURINOL
  11. FLOMAX [Concomitant]
     Active Substance: TAMSULOSIN HYDROCHLORIDE
  12. CALCIUM [Concomitant]
     Active Substance: CALCIUM
  13. DAILY MULTIVITAMIN [Concomitant]
     Active Substance: VITAMINS

REACTIONS (4)
  - Myalgia [None]
  - Musculoskeletal stiffness [None]
  - Drug intolerance [None]
  - Impaired self-care [None]

NARRATIVE: CASE EVENT DATE: 20180222
